FAERS Safety Report 23761870 (Version 1)
Quarter: 2024Q2

REPORT INFORMATION
  Report Type: Other
  Country: US (occurrence: US)
  Receive Date: 20240419
  Receipt Date: 20240419
  Transmission Date: 20240717
  Serious: Yes (Life-Threatening, Hospitalization)
  Sender: FDA-Public Use
  Company Number: US-B.Braun Medical Inc.-2155774

PATIENT
  Age: 50 Year
  Sex: Male

DRUGS (8)
  1. HEPARIN SODIUM IN DEXTROSE [Suspect]
     Active Substance: HEPARIN SODIUM
     Indication: Anticoagulant therapy
  2. BASILIXIMAB [Concomitant]
     Active Substance: BASILIXIMAB
  3. MEROPENEM [Concomitant]
     Active Substance: MEROPENEM
  4. OSELTAMIVIR [Concomitant]
     Active Substance: OSELTAMIVIR
  5. BELATACEPT [Concomitant]
     Active Substance: BELATACEPT
  6. PREDNISONE [Concomitant]
     Active Substance: PREDNISONE
  7. MYCOPHENOLATE MOFETIL [Concomitant]
     Active Substance: MYCOPHENOLATE MOFETIL
  8. TACROLIMUS [Concomitant]
     Active Substance: TACROLIMUS

REACTIONS (2)
  - Haematuria [Recovered/Resolved]
  - Drug ineffective [Recovered/Resolved]
